FAERS Safety Report 8772891 (Version 2)
Quarter: 2012Q4

REPORT INFORMATION
  Report Type: Report from Study
  Country: FR (occurrence: FR)
  Receive Date: 20120907
  Receipt Date: 20120911
  Transmission Date: 20130627
  Serious: Yes (Hospitalization)
  Sender: FDA-Public Use
  Company Number: FR-EISAI INC-E7389-02942-CLI-FR

PATIENT
  Age: 70 Year
  Sex: Female
  Weight: 72 kg

DRUGS (3)
  1. E7389 (BOLD) [Suspect]
     Indication: LUNG CANCER
     Route: 041
     Dates: start: 20120727
  2. DOLIPRANE [Concomitant]
     Indication: BONE PAIN
     Route: 048
     Dates: start: 201207
  3. INEXIUM [Concomitant]
     Indication: GASTROESOPHAGEAL REFLUX
     Route: 048
     Dates: start: 201207

REACTIONS (1)
  - Confusional state [Not Recovered/Not Resolved]
